FAERS Safety Report 9125587 (Version 2)
Quarter: 2013Q1

REPORT INFORMATION
  Report Type: Report from Study
  Country: BR (occurrence: BR)
  Receive Date: 20130227
  Receipt Date: 20130311
  Transmission Date: 20140127
  Serious: Yes (Hospitalization)
  Sender: FDA-Public Use
  Company Number: BR-ROCHE-1172197

PATIENT
  Sex: Female
  Weight: 50 kg

DRUGS (2)
  1. ISOTRETINOIN [Suspect]
     Indication: ACNE
     Route: 065
  2. DIANE-35 [Concomitant]

REACTIONS (2)
  - Acne [Unknown]
  - Surgery [Recovered/Resolved]
